FAERS Safety Report 7215130-9 (Version None)
Quarter: 2011Q1

REPORT INFORMATION
  Report Type: 
  Country: None (occurrence: None)
  Receive Date: 20110107
  Receipt Date: 20100902
  Transmission Date: 20110831
  Serious: No
  Sender: FDA-Public Use
  Company Number: A0879262A

PATIENT
  Age: 64 Year
  Sex: Female

DRUGS (4)
  1. UNKNOWN MEDICATION [Concomitant]
  2. LOVAZA [Suspect]
     Dosage: 3CAP VARIABLE DOSE
     Route: 048
     Dates: start: 20100601
  3. CHOLESTEROL REDUCING AGENT [Concomitant]
  4. BLOOD PRESSURE MEDICATION [Concomitant]

REACTIONS (2)
  - HEADACHE [None]
  - COUGH [None]
